FAERS Safety Report 19968024 (Version 1)
Quarter: 2021Q4

REPORT INFORMATION
  Report Type: Spontaneous
  Country: US (occurrence: US)
  Receive Date: 20211015
  Receipt Date: 20211015
  Transmission Date: 20220303
  Serious: Yes (Hospitalization)
  Sender: FDA-Public Use
  Company Number: None

PATIENT
  Sex: Female

DRUGS (3)
  1. PIQRAY [Suspect]
     Active Substance: ALPELISIB
     Indication: Breast cancer female
     Route: 048
     Dates: start: 20210917
  2. PIQRAY [Suspect]
     Active Substance: ALPELISIB
     Indication: Bone cancer
  3. PIQRAY [Suspect]
     Active Substance: ALPELISIB
     Indication: Metastasis

REACTIONS (6)
  - Diarrhoea [None]
  - Therapy interrupted [None]
  - Oedema peripheral [None]
  - Chest discomfort [None]
  - Joint effusion [None]
  - Drug intolerance [None]
